FAERS Safety Report 25772189 (Version 1)
Quarter: 2025Q3

REPORT INFORMATION
  Report Type: Spontaneous
  Country: CA (occurrence: CA)
  Receive Date: 20250908
  Receipt Date: 20250908
  Transmission Date: 20251020
  Serious: Yes (Death)
  Sender: ROCHE
  Company Number: CA-ROCHE-10000380180

PATIENT
  Age: 43 Year
  Sex: Female
  Weight: 68 kg

DRUGS (5)
  1. RITUXIMAB [Suspect]
     Active Substance: RITUXIMAB
     Indication: Rheumatoid arthritis
     Route: 042
  2. RITUXIMAB [Suspect]
     Active Substance: RITUXIMAB
     Route: 043
  3. RITUXIMAB [Suspect]
     Active Substance: RITUXIMAB
     Route: 058
  4. RITUXIMAB [Suspect]
     Active Substance: RITUXIMAB
     Route: 065
  5. RITUXIMAB [Suspect]
     Active Substance: RITUXIMAB
     Route: 042

REACTIONS (20)
  - Abdominal distension [Fatal]
  - Asthma [Fatal]
  - Back injury [Fatal]
  - C-reactive protein increased [Fatal]
  - Chest pain [Fatal]
  - Coeliac disease [Fatal]
  - Drug-induced liver injury [Fatal]
  - Contusion [Fatal]
  - Dyspepsia [Fatal]
  - Gait inability [Fatal]
  - Infusion site reaction [Fatal]
  - Nail disorder [Fatal]
  - Nausea [Fatal]
  - Neck pain [Fatal]
  - Night sweats [Fatal]
  - Off label use [Fatal]
  - Onychomadesis [Fatal]
  - Pain in extremity [Fatal]
  - Product label confusion [Fatal]
  - Sleep disorder [Fatal]
